FAERS Safety Report 12818472 (Version 9)
Quarter: 2017Q2

REPORT INFORMATION
  Report Type: Spontaneous
  Country: US (occurrence: US)
  Receive Date: 20161005
  Receipt Date: 20170606
  Transmission Date: 20170830
  Serious: Yes (Other)
  Sender: FDA-Public Use
  Company Number: US-AMGEN-USASP2016134667

PATIENT
  Age: 16 Year
  Sex: Male
  Weight: 67.4 kg

DRUGS (5)
  1. EPOGEN [Suspect]
     Active Substance: ERYTHROPOIETIN
     Dosage: 20,000 UNITS/WEEK
     Route: 058
     Dates: start: 201607
  2. TACROLIMUS. [Suspect]
     Active Substance: TACROLIMUS
     Indication: PRODUCT USED FOR UNKNOWN INDICATION
     Dosage: UNK
     Route: 065
  3. EPOGEN [Suspect]
     Active Substance: ERYTHROPOIETIN
     Indication: RENAL DISORDER
     Dosage: 10,000 UNITS/WEEK
     Route: 058
     Dates: start: 201606
  4. EPOGEN [Suspect]
     Active Substance: ERYTHROPOIETIN
     Indication: NEPHROGENIC ANAEMIA
     Dosage: 3,000 UNITS, ONCE A WEEK
     Route: 058
     Dates: start: 2016
  5. EPOGEN [Suspect]
     Active Substance: ERYTHROPOIETIN
     Dosage: 30,000 UNITS/WEEK
     Route: 058
     Dates: start: 201608

REACTIONS (2)
  - Drug ineffective [Not Recovered/Not Resolved]
  - Anti-erythropoietin antibody positive [Unknown]

NARRATIVE: CASE EVENT DATE: 201606
